FAERS Safety Report 11227902 (Version 1)
Quarter: 2015Q2

REPORT INFORMATION
  Report Type: Spontaneous
  Country: US (occurrence: US)
  Receive Date: 20150630
  Receipt Date: 20150630
  Transmission Date: 20150821
  Serious: No
  Sender: FDA-Public Use
  Company Number: US-BAYER-2015-365423

PATIENT
  Age: 27 Year
  Sex: Female
  Weight: 63.49 kg

DRUGS (1)
  1. OXYTROL FOR WOMEN [Suspect]
     Active Substance: OXYBUTYNIN
     Indication: HYPERTONIC BLADDER
     Dosage: 1 DOSE, ONCE EVERY 4 DAYS
     Route: 061
     Dates: start: 201505, end: 201506

REACTIONS (2)
  - Medication residue present [Unknown]
  - Drug ineffective [None]

NARRATIVE: CASE EVENT DATE: 201505
